FAERS Safety Report 10624906 (Version 1)
Quarter: 2014Q4

REPORT INFORMATION
  Report Type: Spontaneous
  Country: FR (occurrence: None)
  Receive Date: 20141202
  Receipt Date: 20141202
  Transmission Date: 20150529
  Serious: Yes (Other)
  Sender: FDA-Public Use
  Company Number: 201411000487

PATIENT
  Age: 18 Day
  Sex: Male

DRUGS (3)
  1. INOMAX [Suspect]
     Active Substance: NITRIC OXIDE
     Indication: HYPOXIA
  2. OXYGEN (OXYGEN) [Concomitant]
     Active Substance: OXYGEN
  3. INOMAX [Suspect]
     Active Substance: NITRIC OXIDE
     Indication: RESPIRATORY DISTRESS

REACTIONS (5)
  - Cardiac output increased [None]
  - Pulmonary hypertension [None]
  - Condition aggravated [None]
  - Hypoxia [None]
  - Pulmonary oedema [None]
